FAERS Safety Report 19914883 (Version 1)
Quarter: 2021Q4

REPORT INFORMATION
  Report Type: Spontaneous
  Country: US (occurrence: US)
  Receive Date: 20211004
  Receipt Date: 20211004
  Transmission Date: 20220303
  Serious: No
  Sender: FDA-Public Use
  Company Number: US-OTSUKA-2020_018690

PATIENT
  Sex: Male

DRUGS (1)
  1. ARIPIPRAZOLE [Suspect]
     Active Substance: ARIPIPRAZOLE
     Indication: Major depression
     Dosage: 5 MG, UNK
     Route: 065
     Dates: start: 202007

REACTIONS (3)
  - Feeling abnormal [Unknown]
  - Memory impairment [Unknown]
  - Product dose omission issue [Unknown]
